FAERS Safety Report 7104380-8 (Version None)
Quarter: 2010Q4

REPORT INFORMATION
  Report Type: 
  Country: None (occurrence: None)
  Receive Date: 20101115
  Receipt Date: 20101101
  Transmission Date: 20110411
  Serious: Yes (Hospitalization)
  Sender: FDA-Public Use
  Company Number: PHEH2008US05759

PATIENT
  Age: 56 Year
  Sex: Female

DRUGS (16)
  1. RECLAST [Suspect]
     Indication: OSTEOPENIA
     Dosage: 5 MG
     Dates: start: 20080619
  2. RECLAST [Suspect]
     Dosage: UNK
  3. RECLAST [Suspect]
     Dosage: 5 MG, UNK
     Dates: start: 20100621
  4. LABETALOL HCL [Concomitant]
     Indication: HYPERTENSION
     Dosage: 100 MG, QD
     Route: 048
  5. NEXIUM [Concomitant]
     Dosage: 40 MG, QD
     Route: 048
  6. ZOCOR [Concomitant]
     Dosage: 40 MG, QD
  7. HYZAAR [Concomitant]
     Indication: HYPERTENSION
     Dosage: 100/25  DAILY
     Route: 048
  8. K-DUR [Concomitant]
  9. ALLEGRA [Concomitant]
  10. CELEBREX [Concomitant]
  11. DILAUDID [Concomitant]
  12. ZANAFLEX [Concomitant]
  13. VITAMIN D3 [Concomitant]
  14. CALTRATE [Concomitant]
  15. CENTRUM SILVER [Concomitant]
  16. FEMARA [Concomitant]
     Dosage: UNK
     Dates: start: 20061201

REACTIONS (10)
  - BONE DENSITY DECREASED [None]
  - BONE PAIN [None]
  - FEELING COLD [None]
  - INFLUENZA LIKE ILLNESS [None]
  - MALAISE [None]
  - PALPITATIONS [None]
  - PYREXIA [None]
  - SPINAL FUSION SURGERY [None]
  - SPINAL LAMINECTOMY [None]
  - STRESS FRACTURE [None]
